FAERS Safety Report 23735632 (Version 1)
Quarter: 2024Q2

REPORT INFORMATION
  Report Type: Spontaneous
  Country: CN (occurrence: CN)
  Receive Date: 20240412
  Receipt Date: 20240412
  Transmission Date: 20240715
  Serious: Yes (Hospitalization, Other)
  Sender: FDA-Public Use
  Company Number: CN-Accord-418029

PATIENT
  Age: 73 Year
  Sex: Female

DRUGS (3)
  1. AZACITIDINE [Suspect]
     Active Substance: AZACITIDINE
     Indication: Colon cancer metastatic
     Dosage: ON DAYS 1 - 5
     Dates: start: 2023
  2. DECITABINE [Suspect]
     Active Substance: DECITABINE
     Indication: Colon cancer metastatic
     Dosage: 25 MG?ON DAYS 1 - 5
     Dates: start: 202305
  3. VENETOCLAX [Suspect]
     Active Substance: VENETOCLAX
     Indication: Colon cancer metastatic
     Dosage: 400 MG ONCE ?DAILY
     Dates: start: 2023

REACTIONS (4)
  - Agranulocytosis [Recovered/Resolved]
  - Thrombocytopenia [Recovered/Resolved]
  - Anaemia [Recovered/Resolved]
  - Granulocytopenia [Recovered/Resolved]

NARRATIVE: CASE EVENT DATE: 20230101
